FAERS Safety Report 8430745-8 (Version None)
Quarter: 2012Q2

REPORT INFORMATION
  Report Type: 
  Country: None (occurrence: None)
  Receive Date: 20120612
  Receipt Date: 20120606
  Transmission Date: 20120825
  Serious: Yes (Other)
  Sender: FDA-Public Use
  Company Number: AU-ROCHE-1070505

PATIENT
  Sex: Male
  Weight: 69 kg

DRUGS (5)
  1. VEMURAFENIB [Suspect]
     Indication: METASTATIC MALIGNANT MELANOMA
     Route: 048
     Dates: start: 20120328, end: 20120516
  2. VEMURAFENIB [Suspect]
     Route: 048
     Dates: start: 20120523
  3. PERINDOPRIL ERBUMINE [Concomitant]
     Indication: HYPERTENSION
     Dosage: DAILY
     Route: 048
  4. LIPITOR [Concomitant]
     Indication: DYSLIPIDAEMIA
     Dosage: DAILY
     Route: 048
  5. METAMUCIL-2 [Concomitant]
     Indication: CONSTIPATION
     Dosage: DAILY
     Route: 048

REACTIONS (3)
  - SKIN MASS [None]
  - KERATOSIS PILARIS [None]
  - PRURITUS [None]
